FAERS Safety Report 7102177-6 (Version None)
Quarter: 2010Q4

REPORT INFORMATION
  Report Type: 
  Country: None (occurrence: None)
  Receive Date: 20101115
  Receipt Date: 20101103
  Transmission Date: 20110411
  Serious: No
  Sender: FDA-Public Use
  Company Number: US-BIOGENIDEC-2010BI008535

PATIENT
  Age: 41 Year
  Sex: Female

DRUGS (3)
  1. TYSABRI [Suspect]
     Indication: MULTIPLE SCLEROSIS
     Route: 042
     Dates: start: 20050127, end: 20050201
  2. TYSABRI [Suspect]
     Route: 042
     Dates: start: 20080116, end: 20090114
  3. TYSABRI [Suspect]
     Route: 042
     Dates: start: 20090708

REACTIONS (5)
  - ANXIETY [None]
  - DEPRESSION [None]
  - MULTIPLE SCLEROSIS RELAPSE [None]
  - PARANOIA [None]
  - STRESS [None]
